FAERS Safety Report 5932743-2 (Version None)
Quarter: 2008Q4

REPORT INFORMATION
  Report Type: 
  Country: None (occurrence: None)
  Receive Date: 20081027
  Receipt Date: 20081027
  Transmission Date: 20090506
  Serious: No
  Sender: FDA-Public Use
  Company Number: None

PATIENT
  Sex: Male
  Weight: 99.3377 kg

DRUGS (8)
  1. CAPECITABINE, 500MG + 150MG TABS/ROCHE [Suspect]
     Indication: PANCREATIC CARCINOMA
     Dosage: 1250MG/M2 BID X 7DAYS PO
     Route: 048
     Dates: start: 20080611, end: 20080706
  2. AMBIEN CR [Concomitant]
  3. ACIPHEX [Concomitant]
  4. LISINOPRIL [Concomitant]
  5. ACTOS [Concomitant]
  6. ZOFRAN [Concomitant]
  7. ATIVAN [Concomitant]
  8. BACLOFEN [Concomitant]

REACTIONS (7)
  - ANXIETY [None]
  - BACK PAIN [None]
  - CHEST PAIN [None]
  - DRUG TOXICITY [None]
  - DYSPNOEA [None]
  - HYPERHIDROSIS [None]
  - SUPRAVENTRICULAR TACHYCARDIA [None]
